FAERS Safety Report 14728557 (Version 4)
Quarter: 2018Q2

REPORT INFORMATION
  Report Type: Spontaneous
  Country: FR (occurrence: FR)
  Receive Date: 20180406
  Receipt Date: 20180423
  Transmission Date: 20180711
  Serious: Yes (Death)
  Sender: FDA-Public Use
  Company Number: FR-TEVA-2018-FR-877975

PATIENT
  Age: 68 Year
  Sex: Female

DRUGS (2)
  1. CARBOPLATINE TEVA 10 MG/ML [Suspect]
     Active Substance: CARBOPLATIN
     Indication: GLIOBLASTOMA
     Dosage: FIRST COURSE
     Route: 065
     Dates: start: 20171226
  2. CARBOPLATINE TEVA 10 MG/ML [Suspect]
     Active Substance: CARBOPLATIN
     Dosage: SECOND COURSE
     Route: 065
     Dates: start: 20180123

REACTIONS (4)
  - Bone marrow failure [Fatal]
  - Haemorrhage [Fatal]
  - Off label use [Unknown]
  - Product use in unapproved indication [Unknown]

NARRATIVE: CASE EVENT DATE: 20171226
